FAERS Safety Report 16022716 (Version 1)
Quarter: 2019Q1

REPORT INFORMATION
  Report Type: Spontaneous
  Country: US (occurrence: US)
  Receive Date: 20190301
  Receipt Date: 20190301
  Transmission Date: 20190418
  Serious: Yes (Death, Other)
  Sender: FDA-Public Use
  Company Number: US-BRISTOL-MYERS SQUIBB COMPANY-BMS-2019-019678

PATIENT
  Age: 64 Year
  Sex: Male

DRUGS (2)
  1. OPDIVO [Suspect]
     Active Substance: NIVOLUMAB
     Indication: MALIGNANT MELANOMA
     Dosage: 393 MG, Q3WK
     Route: 042
     Dates: start: 20180103
  2. YERVOY [Suspect]
     Active Substance: IPILIMUMAB
     Indication: MALIGNANT MELANOMA
     Dosage: 132 MG, Q3WK
     Route: 042
     Dates: start: 20180103

REACTIONS (1)
  - Death [Fatal]

NARRATIVE: CASE EVENT DATE: 20180422
